FAERS Safety Report 7481724-9 (Version None)
Quarter: 2011Q2

REPORT INFORMATION
  Report Type: 
  Country: None (occurrence: None)
  Receive Date: 20110516
  Receipt Date: 20110509
  Transmission Date: 20111010
  Serious: Yes (Other)
  Sender: FDA-Public Use
  Company Number: A0912501A

PATIENT
  Sex: Female

DRUGS (4)
  1. ASPIRIN [Concomitant]
  2. ADVAIR DISKUS 100/50 [Suspect]
     Indication: CHRONIC OBSTRUCTIVE PULMONARY DISEASE
     Dosage: 1PUFF TWICE PER DAY
     Route: 055
     Dates: start: 20070101
  3. VENTOLIN [Concomitant]
  4. CLARITIN [Concomitant]

REACTIONS (9)
  - DYSPNOEA [None]
  - OSTEOPOROSIS [None]
  - UPPER RESPIRATORY TRACT INFECTION [None]
  - INHALATION THERAPY [None]
  - COMPRESSION FRACTURE [None]
  - BACK DISORDER [None]
  - CATARACT [None]
  - BLINDNESS [None]
  - WEIGHT INCREASED [None]
